FAERS Safety Report 8027644-2 (Version None)
Quarter: 2012Q1

REPORT INFORMATION
  Report Type: 
  Country: None (occurrence: None)
  Receive Date: 20120105
  Receipt Date: 20120105
  Transmission Date: 20120608
  Serious: No
  Sender: FDA-Public Use
  Company Number: None

PATIENT
  Age: 50 Year
  Sex: Male
  Weight: 83.5 kg

DRUGS (2)
  1. TRAZODONE HCL [Suspect]
     Dosage: 150 MG HS PO
     Route: 048
     Dates: start: 20110721, end: 20110906
  2. BUSPIRONE HCL [Suspect]
     Dosage: 5 MG TID PO
     Route: 048
     Dates: start: 20110830, end: 20110906

REACTIONS (9)
  - COLD SWEAT [None]
  - MUSCULOSKELETAL STIFFNESS [None]
  - AGITATION [None]
  - ANXIETY [None]
  - CONFUSIONAL STATE [None]
  - TREMOR [None]
  - SEROTONIN SYNDROME [None]
  - PALPITATIONS [None]
  - INSOMNIA [None]
